FAERS Safety Report 18643555 (Version 2)
Quarter: 2021Q2

REPORT INFORMATION
  Report Type: Spontaneous
  Country: FR (occurrence: FR)
  Receive Date: 20201221
  Receipt Date: 20210528
  Transmission Date: 20210717
  Serious: Yes (Hospitalization, Disabling, Other)
  Sender: FDA-Public Use
  Company Number: FR-PFIZER INC-2020495366

PATIENT
  Age: 52 Year
  Sex: Female
  Weight: 61 kg

DRUGS (11)
  1. ZOMIG [Concomitant]
     Active Substance: ZOLMITRIPTAN
     Dosage: UNK
  2. TRINORDIOL [Suspect]
     Active Substance: ETHINYL ESTRADIOL\LEVONORGESTREL
     Indication: HYPERANDROGENISM
     Dosage: UNK
     Route: 065
     Dates: start: 1998, end: 1999
  3. MIRENA [Suspect]
     Active Substance: LEVONORGESTREL
     Indication: INTRAUTERINE CONTRACEPTION
     Dosage: UNK
     Route: 015
  4. OROMONE [Suspect]
     Active Substance: ESTRADIOL
     Indication: HORMONE REPLACEMENT THERAPY
     Dosage: UNK
     Route: 065
     Dates: start: 200507, end: 201108
  5. CYPROTERONE?TEVA [Suspect]
     Active Substance: CYPROTERONE ACETATE
     Dosage: UNK
     Route: 065
     Dates: start: 201104
  6. ANDROCUR [Suspect]
     Active Substance: CYPROTERONE ACETATE
     Indication: HORMONE REPLACEMENT THERAPY
     Dosage: UNK, SEVEN DAYS PER MONTH
     Route: 065
     Dates: start: 200507, end: 201108
  7. ANDROCUR [Suspect]
     Active Substance: CYPROTERONE ACETATE
     Indication: CONTRACEPTION
     Dosage: UNK., SEVEN DAYS PER MONTH
     Route: 065
     Dates: start: 2000, end: 2004
  8. ANDROCUR [Suspect]
     Active Substance: CYPROTERONE ACETATE
     Dosage: 0.5 DF, TWENTY DAYS PER MONTH
     Route: 065
     Dates: start: 20120828, end: 201506
  9. CYPROTERONE?TEVA [Suspect]
     Active Substance: CYPROTERONE ACETATE
     Indication: HYPERANDROGENISM
     Dosage: UNK
     Route: 065
     Dates: start: 201012
  10. ANDROCUR [Suspect]
     Active Substance: CYPROTERONE ACETATE
     Indication: HYPERANDROGENISM
     Dosage: UNK, SEVEN DAYS PER MONTH
     Route: 065
     Dates: start: 1998, end: 1999
  11. CYCLEANE [Suspect]
     Active Substance: DESOGESTREL\ETHINYL ESTRADIOL
     Indication: CONTRACEPTION
     Dosage: UNK
     Route: 048
     Dates: start: 2000, end: 2004

REACTIONS (13)
  - Oedema [Recovered/Resolved]
  - Headache [Not Recovered/Not Resolved]
  - Somnolence [Unknown]
  - Muscle tightness [Unknown]
  - Nausea [Unknown]
  - Off label use [Unknown]
  - Intracranial pressure increased [Recovered/Resolved]
  - Meningioma [Recovered/Resolved]
  - Facial paralysis [Unknown]
  - Cognitive disorder [Recovered/Resolved]
  - Intracranial tumour haemorrhage [Recovered/Resolved]
  - Vomiting [Unknown]
  - Squamous cell carcinoma [Unknown]

NARRATIVE: CASE EVENT DATE: 20140805
